FAERS Safety Report 21301628 (Version 3)
Quarter: 2022Q4

REPORT INFORMATION
  Report Type: Report from Study
  Country: US (occurrence: US)
  Receive Date: 20220907
  Receipt Date: 20221012
  Transmission Date: 20230113
  Serious: Yes (Hospitalization, Other)
  Sender: FDA-Public Use
  Company Number: US-JNJFOC-20220811257

PATIENT
  Age: 65 Year
  Sex: Male
  Weight: 106.24 kg

DRUGS (3)
  1. OPSUMIT [Suspect]
     Active Substance: MACITENTAN
     Indication: Pulmonary arterial hypertension
     Route: 048
     Dates: start: 20220413, end: 20220725
  2. REVATIO [Concomitant]
     Active Substance: SILDENAFIL CITRATE
     Indication: Pulmonary arterial hypertension
     Route: 048
     Dates: start: 20220102
  3. OXYGEN [Concomitant]
     Active Substance: OXYGEN

REACTIONS (4)
  - Acute respiratory failure [Recovered/Resolved with Sequelae]
  - Skin necrosis [Unknown]
  - Hypoxia [Unknown]
  - Ammonia increased [Unknown]

NARRATIVE: CASE EVENT DATE: 20220722
